FAERS Safety Report 9199563 (Version 1)
Quarter: 2013Q1

REPORT INFORMATION
  Report Type: Spontaneous
  Country: US (occurrence: None)
  Receive Date: 20130326
  Receipt Date: 20130326
  Transmission Date: 20140127
  Serious: Yes (Other)
  Sender: FDA-Public Use
  Company Number: SYM-2013-01580

PATIENT
  Age: 50 Year
  Sex: Female

DRUGS (7)
  1. ATIVAN [Suspect]
     Indication: PRODUCT USED FOR UNKNOWN INDICATION
     Dates: start: 20130102
  2. AMOXICILLIN [Concomitant]
  3. CODEINE (CODEINE) (UNKNOWN) (CODEINE) [Concomitant]
  4. ERYTHROMYCIN (ERYTHROMYCIN)(UNKNOWN)(ERYTHROMYCIN) [Concomitant]
  5. PENICILLINS (BENZYLPENICILLIN) (UNKNOWN) (BENZYLPENICILL [Concomitant]
  6. TETRACYCLINE (TETRACYCLINE) (UNKNOWN) (TETRACYCLINE) [Concomitant]
  7. ZANTAC (RANITIDINE HYDROCHLORIDE) (RANITIDINE HYDROCHLORIDE) [Concomitant]

REACTIONS (14)
  - Seasonal allergy [None]
  - Arthritis [None]
  - Depression [None]
  - Type 2 diabetes mellitus [None]
  - Gastrointestinal disorder [None]
  - Migraine [None]
  - Blood cholesterol increased [None]
  - Blood pressure increased [None]
  - Musculoskeletal disorder [None]
  - Obesity [None]
  - Visual impairment [None]
  - Pharyngeal oedema [None]
  - Rash [None]
  - Convulsion [None]
